FAERS Safety Report 7777167-0 (Version None)
Quarter: 2011Q3

REPORT INFORMATION
  Report Type: 
  Country: None (occurrence: None)
  Receive Date: 20110922
  Receipt Date: 20110916
  Transmission Date: 20111222
  Serious: Yes (Other)
  Sender: FDA-Public Use
  Company Number: 2011SP035776

PATIENT
  Age: 23 Year
  Sex: Female

DRUGS (1)
  1. IMPLANON [Suspect]
     Indication: CONTRACEPTION
     Dosage: 1 DF;
     Dates: start: 20100528, end: 20110726

REACTIONS (5)
  - DEVICE BREAKAGE [None]
  - IMPLANT SITE IRRITATION [None]
  - DEVICE DAMAGE [None]
  - IMPLANT SITE PRURITUS [None]
  - PRODUCT QUALITY ISSUE [None]
